FAERS Safety Report 5670152-4 (Version None)
Quarter: 2008Q1

REPORT INFORMATION
  Report Type: 
  Country: None (occurrence: None)
  Receive Date: 20080312
  Receipt Date: 20080226
  Transmission Date: 20080703
  Serious: Yes (Death, Hospitalization)
  Sender: FDA-Public Use
  Company Number: A-CH2008-19649

PATIENT
  Age: 55 Year
  Sex: Male
  Weight: 85 kg

DRUGS (8)
  1. TRACLEER [Suspect]
     Indication: PULMONARY HYPERTENSION
     Dosage: 125 MG, BID, ORAL; 62.5 MG, BID, ORAL
     Route: 048
     Dates: start: 20060613, end: 20060719
  2. TRACLEER [Suspect]
     Indication: PULMONARY HYPERTENSION
     Dosage: 125 MG, BID, ORAL; 62.5 MG, BID, ORAL
     Route: 048
     Dates: start: 20060720, end: 20070922
  3. ACEMIN (LISINOPRIL) [Concomitant]
  4. LEVOFLOXACIN [Concomitant]
  5. FUCIDINE CAP [Concomitant]
  6. HYDAL (HYDROMORPHONE HYDROCHLORIDE) [Concomitant]
  7. PANTOPRAZOLE SODIUM [Concomitant]
  8. URBASON (METHYLPREDNISOLONE) [Concomitant]

REACTIONS (12)
  - ACUTE RESPIRATORY DISTRESS SYNDROME [None]
  - ALANINE AMINOTRANSFERASE INCREASED [None]
  - ASPARTATE AMINOTRANSFERASE INCREASED [None]
  - BLOOD ALKALINE PHOSPHATASE INCREASED [None]
  - BLOOD BILIRUBIN INCREASED [None]
  - CONDITION AGGRAVATED [None]
  - COUGH [None]
  - LIVER FUNCTION TEST ABNORMAL [None]
  - OSTEOMYELITIS [None]
  - RESPIRATORY TRACT INFECTION [None]
  - SKIN ULCER [None]
  - VOMITING [None]
